FAERS Safety Report 8067709-2 (Version None)
Quarter: 2012Q1

REPORT INFORMATION
  Report Type: 
  Country: None (occurrence: None)
  Receive Date: 20120124
  Receipt Date: 20120117
  Transmission Date: 20120608
  Serious: Yes (Death, Life-Threatening)
  Sender: FDA-Public Use
  Company Number: JP-PFIZER INC-2012013824

PATIENT
  Age: 83 Year
  Sex: Male
  Weight: 50.9 kg

DRUGS (11)
  1. MUCOSTA [Concomitant]
     Dosage: UNK
     Dates: start: 20110214, end: 20110411
  2. TARGOCID [Concomitant]
     Dosage: UNK
     Dates: start: 20110326, end: 20110404
  3. CYTOTEC [Concomitant]
     Dosage: UNK
     Dates: start: 20110214, end: 20110411
  4. MAGMITT [Concomitant]
     Dosage: UNK
     Dates: start: 20110222, end: 20110411
  5. LANSOPRAZOLE [Concomitant]
     Dosage: UNK
     Dates: start: 20110222, end: 20110411
  6. PURSENNID [Concomitant]
     Dosage: UNK
     Dates: start: 20110222, end: 20110411
  7. CELECOXIB [Suspect]
     Indication: BACK PAIN
     Dosage: 100 MG, 2X/DAY
     Route: 048
     Dates: start: 20110324, end: 20110411
  8. ASPIRIN [Suspect]
     Dosage: 100 MG, UID/QD
     Route: 048
     Dates: end: 20110126
  9. ASPIRIN [Suspect]
     Dosage: UNK
     Route: 048
     Dates: end: 20100801
  10. FERROUS CITRATE [Concomitant]
     Dosage: UNK
     Dates: start: 20110214, end: 20110411
  11. FLUMARIN [Concomitant]
     Dosage: UNK
     Dates: start: 20110323, end: 20110411

REACTIONS (2)
  - PNEUMONIA ASPIRATION [None]
  - SMALL INTESTINAL PERFORATION [None]
